FAERS Safety Report 4784009-4 (Version None)
Quarter: 2005Q3

REPORT INFORMATION
  Report Type: 
  Country: None (occurrence: None)
  Receive Date: 20050927
  Receipt Date: 20050808
  Transmission Date: 20060218
  Serious: No
  Sender: FDA-Public Use
  Company Number: SP00483

PATIENT
  Age: 45 Year
  Sex: Female
  Weight: 57.1532 kg

DRUGS (1)
  1. XIFAXAN [Suspect]
     Indication: COLITIS
     Dosage: 400MG/BID,ORAL
     Route: 048
     Dates: start: 20050804

REACTIONS (3)
  - DIZZINESS [None]
  - LETHARGY [None]
  - MALAISE [None]
